FAERS Safety Report 7951387-4 (Version None)
Quarter: 2011Q4

REPORT INFORMATION
  Report Type: 
  Country: None (occurrence: None)
  Receive Date: 20111201
  Receipt Date: 20111129
  Transmission Date: 20120403
  Serious: Yes (Death)
  Sender: FDA-Public Use
  Company Number: AU-B.I. PHARMACEUTICALS,INC./RIDGEFIELD-2011-AU-02052AU

PATIENT
  Sex: Male
  Weight: 70 kg

DRUGS (9)
  1. SINGULAIR [Concomitant]
  2. FLUTICASONE PROPIONATE/SALMETEROL [Concomitant]
  3. VENTOLIN [Concomitant]
  4. LANOXIN [Concomitant]
  5. ALDACTONE [Concomitant]
     Dosage: 75 MG
  6. PRILOSEC [Concomitant]
  7. DICLOXACILLIN [Concomitant]
     Dosage: 2000 MG
  8. PRADAXA [Suspect]
     Indication: ATRIAL FIBRILLATION
     Dates: start: 20110811
  9. LASIX [Concomitant]
     Dosage: 40 MG

REACTIONS (6)
  - LARGE INTESTINAL STRICTURE [None]
  - ONCOCYTOMA [None]
  - PERITONEAL HAEMORRHAGE [None]
  - BRONCHOPNEUMONIA [None]
  - VOLVULUS OF SMALL BOWEL [None]
  - INTESTINAL ISCHAEMIA [None]
